FAERS Safety Report 10288270 (Version 1)
Quarter: 2014Q3

REPORT INFORMATION
  Report Type: Spontaneous
  Country: LK (occurrence: LK)
  Receive Date: 20140709
  Receipt Date: 20140709
  Transmission Date: 20150326
  Serious: Yes (Death, Other)
  Sender: FDA-Public Use
  Company Number: LK-ACTAVIS-2014-14762

PATIENT
  Age: 25 Year
  Sex: Male

DRUGS (1)
  1. MORPHINE (UNKNOWN) [Suspect]
     Active Substance: MORPHINE
     Indication: PRODUCT USED FOR UNKNOWN INDICATION
     Dosage: UNK
     Route: 065

REACTIONS (2)
  - Depressed level of consciousness [Fatal]
  - Toxicity to various agents [Fatal]
